FAERS Safety Report 21977737 (Version 1)
Quarter: 2023Q1

REPORT INFORMATION
  Report Type: Spontaneous
  Country: US (occurrence: US)
  Receive Date: 20230210
  Receipt Date: 20230210
  Transmission Date: 20230418
  Serious: No
  Sender: FDA-Public Use
  Company Number: US-drreddys-SPO/USA/23/0159798

PATIENT
  Age: 78 Year
  Sex: Female

DRUGS (5)
  1. LENALIDOMIDE [Suspect]
     Active Substance: LENALIDOMIDE
     Indication: Plasma cell myeloma
     Dosage: TAKE 1 CAPSULE BY MOUTH EVERY DAY ON DAYS 1-21 OF EACH 28 DAY CYCLE
     Route: 048
     Dates: start: 20221102
  2. SIMVASTATIN [Concomitant]
     Active Substance: SIMVASTATIN
     Indication: Product used for unknown indication
  3. Aspirin CHE [Concomitant]
     Indication: Product used for unknown indication
  4. Oxycodone HC [Concomitant]
     Indication: Product used for unknown indication
  5. Pantoprazole TBE [Concomitant]
     Indication: Product used for unknown indication

REACTIONS (1)
  - Product administration interrupted [Unknown]
